FAERS Safety Report 8607257 (Version 2)
Quarter: 2012Q4

REPORT INFORMATION
  Report Type: 
  Country: US (occurrence: US)
  Receive Date: 20120611
  Receipt Date: 20120928
  Transmission Date: 20130627
  Serious: No
  Sender: FDA-Public Use
  Company Number: US-ASTRAZENECA-2012SE35885

PATIENT
  Age: 68 Year

DRUGS (3)
  1. NEXIUM [Suspect]
     Indication: ULCER
     Route: 048
  2. NEXIUM [Suspect]
     Indication: ULCER
     Route: 048
     Dates: start: 2007, end: 2012
  3. NEXIUM [Suspect]
     Indication: ULCER
     Route: 048
     Dates: start: 201205

REACTIONS (4)
  - Osteoporosis [Unknown]
  - Bone density decreased [Unknown]
  - Multiple fractures [Unknown]
  - Hand fracture [Unknown]
